FAERS Safety Report 24257272 (Version 4)
Quarter: 2024Q4

REPORT INFORMATION
  Report Type: Report from Study
  Country: CA (occurrence: CA)
  Receive Date: 20240828
  Receipt Date: 20241114
  Transmission Date: 20250115
  Serious: Yes (Other)
  Sender: CSL BEHRING
  Company Number: CA-BEH-2024173203

PATIENT
  Age: 61 Year
  Sex: Female
  Weight: 40 kg

DRUGS (22)
  1. HIZENTRA [Suspect]
     Active Substance: HUMAN IMMUNOGLOBULIN G
     Indication: Primary immunodeficiency syndrome
     Dosage: 6 G, QW
     Route: 065
     Dates: start: 20240402
  2. HIZENTRA [Suspect]
     Active Substance: HUMAN IMMUNOGLOBULIN G
     Dosage: 6 G, QW
     Route: 065
     Dates: start: 20240402
  3. HIZENTRA [Suspect]
     Active Substance: HUMAN IMMUNOGLOBULIN G
     Dosage: 6 G, QW
     Route: 065
     Dates: start: 20240402
  4. HIZENTRA [Suspect]
     Active Substance: HUMAN IMMUNOGLOBULIN G
     Dosage: UNK
     Route: 065
  5. HIZENTRA [Suspect]
     Active Substance: HUMAN IMMUNOGLOBULIN G
     Dosage: UNK
     Route: 065
  6. HIZENTRA [Suspect]
     Active Substance: HUMAN IMMUNOGLOBULIN G
     Dosage: UNK
     Route: 065
     Dates: start: 20240529
  7. HIZENTRA [Suspect]
     Active Substance: HUMAN IMMUNOGLOBULIN G
     Dosage: UNK
     Route: 065
     Dates: start: 20240606
  8. HIZENTRA [Suspect]
     Active Substance: HUMAN IMMUNOGLOBULIN G
     Dosage: 6 G, TOT
     Route: 065
     Dates: start: 20240614, end: 20240614
  9. HIZENTRA [Suspect]
     Active Substance: HUMAN IMMUNOGLOBULIN G
     Dosage: UNK
     Route: 065
     Dates: start: 20240620
  10. HIZENTRA [Suspect]
     Active Substance: HUMAN IMMUNOGLOBULIN G
     Dosage: UNK
     Route: 065
     Dates: start: 20240627
  11. HIZENTRA [Suspect]
     Active Substance: HUMAN IMMUNOGLOBULIN G
     Dosage: 6 G
     Route: 065
     Dates: start: 20240704
  12. HIZENTRA [Suspect]
     Active Substance: HUMAN IMMUNOGLOBULIN G
     Dosage: 6 G
     Route: 065
     Dates: start: 20240712
  13. HIZENTRA [Suspect]
     Active Substance: HUMAN IMMUNOGLOBULIN G
     Dosage: 6 G, QW
     Route: 065
     Dates: start: 20240723
  14. HIZENTRA [Suspect]
     Active Substance: HUMAN IMMUNOGLOBULIN G
     Dosage: 6 G, QW
     Route: 065
     Dates: start: 20240723
  15. HIZENTRA [Suspect]
     Active Substance: HUMAN IMMUNOGLOBULIN G
     Dosage: 6 G, QW
     Route: 065
     Dates: start: 20240731
  16. HIZENTRA [Suspect]
     Active Substance: HUMAN IMMUNOGLOBULIN G
     Dosage: 6 G, QW
     Route: 065
  17. HIZENTRA [Suspect]
     Active Substance: HUMAN IMMUNOGLOBULIN G
     Dosage: 6 G, QW
     Route: 065
     Dates: start: 20240402
  18. CALCIUM [Concomitant]
     Active Substance: CALCIUM
  19. LOMOTIL [Concomitant]
     Active Substance: ATROPINE SULFATE\DIPHENOXYLATE HYDROCHLORIDE
     Indication: Diarrhoea
  20. LOMOTIL [Concomitant]
     Active Substance: ATROPINE SULFATE\DIPHENOXYLATE HYDROCHLORIDE
     Dosage: 7.5 MG, QD
     Route: 048
     Dates: start: 20240507
  21. Comirnaty [Concomitant]
     Dosage: 0.3 ML
     Route: 065
  22. FLULAVAL [Concomitant]
     Dosage: 0.3 ML
     Route: 065

REACTIONS (50)
  - Colitis microscopic [Unknown]
  - Injection site oedema [Unknown]
  - Abdominal distension [Recovered/Resolved]
  - Injection site oedema [Unknown]
  - Injection site erythema [Unknown]
  - Abdominal distension [Unknown]
  - Infusion site oedema [Unknown]
  - Infusion site erythema [Unknown]
  - Diarrhoea [Unknown]
  - Abdominal distension [Unknown]
  - Infusion site erythema [Unknown]
  - Infusion site oedema [Unknown]
  - Vomiting [Unknown]
  - Dizziness [Unknown]
  - Asthenia [Unknown]
  - Abdominal distension [Unknown]
  - Diarrhoea [Unknown]
  - Infusion site erythema [Unknown]
  - Infusion site oedema [Unknown]
  - Injection site oedema [Unknown]
  - Injection site erythema [Unknown]
  - Faeces soft [Unknown]
  - Injection site discharge [Unknown]
  - Injection site erythema [Unknown]
  - Injection site oedema [Unknown]
  - Diarrhoea [Unknown]
  - Abdominal distension [Recovered/Resolved]
  - Abdominal pain upper [Unknown]
  - Infusion site erythema [Unknown]
  - Injection site oedema [Unknown]
  - Infusion site discharge [Unknown]
  - Abdominal distension [Unknown]
  - Diarrhoea [Unknown]
  - Infusion site oedema [Unknown]
  - Infusion site erythema [Unknown]
  - Infusion site discomfort [Unknown]
  - Injection site oedema [Unknown]
  - Injection site erythema [Unknown]
  - Gastrointestinal disorder [Unknown]
  - Dyspnoea [Unknown]
  - Abdominal distension [Unknown]
  - Injection site oedema [Unknown]
  - Injection site erythema [Unknown]
  - Sense of oppression [Unknown]
  - Faeces soft [Unknown]
  - Sense of oppression [Unknown]
  - Hyperhidrosis [Unknown]
  - Hypophagia [Unknown]
  - Infusion site oedema [Unknown]
  - Infusion site haemorrhage [Recovered/Resolved]

NARRATIVE: CASE EVENT DATE: 20240522
